APPROVED DRUG PRODUCT: EPTIFIBATIDE
Active Ingredient: EPTIFIBATIDE
Strength: 2MG/ML
Dosage Form/Route: INJECTABLE;INJECTION
Application: A207864 | Product #001
Applicant: HYBIO PHARMACEUTICAL CO LTD
Approved: Mar 20, 2020 | RLD: No | RS: No | Type: DISCN